FAERS Safety Report 7798812-X (Version None)
Quarter: 2011Q4

REPORT INFORMATION
  Report Type: 
  Country: None (occurrence: None)
  Receive Date: 20111005
  Receipt Date: 20111005
  Transmission Date: 20120403
  Serious: No
  Sender: FDA-Public Use
  Company Number: None

PATIENT
  Sex: Male
  Weight: 87 kg

DRUGS (2)
  1. CISPLATIN [Suspect]
     Dosage: 210 MG
     Dates: end: 20060710
  2. MORPHINE [Concomitant]

REACTIONS (8)
  - NAUSEA [None]
  - VOMITING [None]
  - MALNUTRITION [None]
  - HYPOPHAGIA [None]
  - RESPIRATORY FAILURE [None]
  - STOMATITIS [None]
  - FEBRILE NEUTROPENIA [None]
  - PHARYNGEAL INFLAMMATION [None]
